FAERS Safety Report 15301904 (Version 2)
Quarter: 2018Q4

REPORT INFORMATION
  Report Type: Spontaneous
  Country: GB (occurrence: GB)
  Receive Date: 20180821
  Receipt Date: 20181120
  Transmission Date: 20190204
  Serious: Yes (Other)
  Sender: FDA-Public Use
  Company Number: PHHY2018GB077038

PATIENT

DRUGS (1)
  1. COSENTYX [Suspect]
     Active Substance: SECUKINUMAB
     Indication: PRODUCT USED FOR UNKNOWN INDICATION
     Dosage: UNK UNK, QMO
     Route: 065
     Dates: start: 201804

REACTIONS (3)
  - Lung neoplasm malignant [Unknown]
  - Non-small cell lung cancer recurrent [Unknown]
  - Metastasis [Unknown]

NARRATIVE: CASE EVENT DATE: 201804
